FAERS Safety Report 20984804 (Version 1)
Quarter: 2022Q2

REPORT INFORMATION
  Report Type: Other
  Country: US (occurrence: None)
  Receive Date: 20220621
  Receipt Date: 20220621
  Transmission Date: 20220720
  Serious: Yes (Other)
  Sender: FDA-Public Use
  Company Number: US-ROCHE-2887865

PATIENT
  Age: 78 Year
  Sex: Male

DRUGS (3)
  1. CAPECITABINE [Suspect]
     Active Substance: CAPECITABINE
     Indication: Gastric cancer
     Dosage: FOR 14 DAYS; 850 MG/M2 ORAL TWICE DAILY FOR 14 DAYS) EVERY 3 WEEKS FOR THE FIRST 2 CYCLES
     Route: 048
  2. PEMBROLIZUMAB [Suspect]
     Active Substance: PEMBROLIZUMAB
     Indication: Gastric cancer
     Route: 042
  3. PEMBROLIZUMAB [Suspect]
     Active Substance: PEMBROLIZUMAB
     Dosage: FOR 1 YEAR
     Route: 042

REACTIONS (1)
  - Neutropenia [Unknown]
